FAERS Safety Report 24112272 (Version 1)
Quarter: 2024Q3

REPORT INFORMATION
  Report Type: Report from Study
  Country: US (occurrence: None)
  Receive Date: 20240719
  Receipt Date: 20240719
  Transmission Date: 20241016
  Serious: Yes (Hospitalization)
  Sender: ASTRAZENECA
  Company Number: 2022A355103

PATIENT
  Sex: Female
  Weight: 63.5 kg

DRUGS (1)
  1. TAGRISSO [Suspect]
     Active Substance: OSIMERTINIB
     Indication: Lung neoplasm malignant
     Route: 048
     Dates: start: 20221007

REACTIONS (7)
  - Taste disorder [Unknown]
  - Gastrointestinal disorder [Unknown]
  - Flatulence [Unknown]
  - Parosmia [Unknown]
  - Fatigue [Unknown]
  - Diarrhoea [Unknown]
  - Platelet count decreased [Unknown]
